FAERS Safety Report 25452718 (Version 1)
Quarter: 2025Q2

REPORT INFORMATION
  Report Type: Spontaneous
  Country: GB (occurrence: GB)
  Receive Date: 20250618
  Receipt Date: 20250618
  Transmission Date: 20250717
  Serious: Yes (Hospitalization)
  Sender: MYLAN
  Company Number: GB-MYLANLABS-2025M1051148

PATIENT
  Sex: Male

DRUGS (12)
  1. DEXAMETHASONE [Suspect]
     Active Substance: DEXAMETHASONE
     Indication: Splenomegaly
  2. DEXAMETHASONE [Suspect]
     Active Substance: DEXAMETHASONE
     Route: 065
  3. DEXAMETHASONE [Suspect]
     Active Substance: DEXAMETHASONE
     Route: 065
  4. DEXAMETHASONE [Suspect]
     Active Substance: DEXAMETHASONE
  5. CYCLIZINE [Suspect]
     Active Substance: CYCLIZINE
     Indication: Splenomegaly
  6. CYCLIZINE [Suspect]
     Active Substance: CYCLIZINE
     Route: 065
  7. CYCLIZINE [Suspect]
     Active Substance: CYCLIZINE
     Route: 065
  8. CYCLIZINE [Suspect]
     Active Substance: CYCLIZINE
  9. MORPHINE [Suspect]
     Active Substance: MORPHINE
     Indication: Splenomegaly
  10. MORPHINE [Suspect]
     Active Substance: MORPHINE
     Route: 065
  11. MORPHINE [Suspect]
     Active Substance: MORPHINE
     Route: 065
  12. MORPHINE [Suspect]
     Active Substance: MORPHINE

REACTIONS (1)
  - Drug ineffective [Unknown]
